FAERS Safety Report 9087656 (Version 2)
Quarter: 2013Q1

REPORT INFORMATION
  Report Type: Spontaneous
  Country: DE (occurrence: DE)
  Receive Date: 20130131
  Receipt Date: 20130306
  Transmission Date: 20140127
  Serious: Yes (Hospitalization, Disabling, Other)
  Sender: FDA-Public Use
  Company Number: DE-PFIZER INC-2013032934

PATIENT
  Age: 76 Year
  Sex: Male

DRUGS (2)
  1. LYRICA [Suspect]
     Indication: NERVE ROOT COMPRESSION
     Dosage: 50 MG IN THE MORNING, 100 MG IN THE EVENING
     Dates: start: 20120918, end: 20120930
  2. IBUPROFEN [Concomitant]

REACTIONS (26)
  - Suicide attempt [Unknown]
  - Road traffic accident [Unknown]
  - Mouth injury [Unknown]
  - Face injury [Unknown]
  - Craniocerebral injury [Unknown]
  - Facial bones fracture [Unknown]
  - Thoracic vertebral fracture [Unknown]
  - Soft tissue injury [Unknown]
  - Pulmonary contusion [Unknown]
  - Limb injury [Unknown]
  - Transient psychosis [Unknown]
  - Personality change due to a general medical condition [Recovering/Resolving]
  - Slow response to stimuli [Not Recovered/Not Resolved]
  - Mood altered [Not Recovered/Not Resolved]
  - Dysarthria [Recovering/Resolving]
  - Aphonia [Recovering/Resolving]
  - Memory impairment [Not Recovered/Not Resolved]
  - Amnesia [Recovering/Resolving]
  - Cognitive disorder [Recovering/Resolving]
  - Adjustment disorder with depressed mood [Unknown]
  - Vocal cord paresis [Unknown]
  - Dysphonia [Unknown]
  - Dysphagia [Recovering/Resolving]
  - Diplopia [Unknown]
  - Restlessness [Unknown]
  - Confusional state [Unknown]
